FAERS Safety Report 26157804 (Version 1)
Quarter: 2025Q4

REPORT INFORMATION
  Report Type: Spontaneous
  Country: US (occurrence: None)
  Receive Date: 20251215
  Receipt Date: 20251215
  Transmission Date: 20260117
  Serious: Yes (Hospitalization)
  Sender: FDA-CTU
  Company Number: None

PATIENT
  Age: 76 Year
  Sex: Male
  Weight: 89 kg

DRUGS (1)
  1. APIXABAN [Suspect]
     Active Substance: APIXABAN
     Indication: Atrial fibrillation
     Dates: start: 20240524, end: 20251002

REACTIONS (7)
  - Haemorrhage [None]
  - Fall [None]
  - Cerebral haemorrhage [None]
  - Thrombocytopenia [None]
  - Pain in extremity [None]
  - Hypervolaemia [None]
  - Platelet count decreased [None]

NARRATIVE: CASE EVENT DATE: 20251017
